FAERS Safety Report 25319800 (Version 2)
Quarter: 2025Q2

REPORT INFORMATION
  Report Type: Spontaneous
  Country: US (occurrence: US)
  Receive Date: 20250515
  Receipt Date: 20250527
  Transmission Date: 20250717
  Serious: Yes (Hospitalization)
  Sender: CALLIDITAS THERAPEUTICS AB
  Company Number: US-Calliditas-2025CAL01300

PATIENT
  Age: 49 Year
  Sex: Male

DRUGS (13)
  1. TARPEYO [Suspect]
     Active Substance: BUDESONIDE
     Indication: IgA nephropathy
     Route: 048
     Dates: start: 20240702
  2. AMITRIPTYLINE [Concomitant]
     Active Substance: AMITRIPTYLINE
  3. PANTOPRAZOLE [Concomitant]
     Active Substance: PANTOPRAZOLE
  4. CHLORTHALIDONE [Concomitant]
     Active Substance: CHLORTHALIDONE
  5. PROBIOTICS NOS [Concomitant]
     Active Substance: PROBIOTICS NOS
  6. PEPCID AC [Concomitant]
     Active Substance: FAMOTIDINE
  7. TESTOSTERONE [Concomitant]
     Active Substance: TESTOSTERONE
  8. HYDRALAZINE [Concomitant]
     Active Substance: HYDRALAZINE HYDROCHLORIDE
  9. LISINOPRIL [Concomitant]
     Active Substance: LISINOPRIL
  10. JARDIANCE [Concomitant]
     Active Substance: EMPAGLIFLOZIN
  11. GABAPENTIN [Concomitant]
     Active Substance: GABAPENTIN
  12. BACLOFEN [Concomitant]
     Active Substance: BACLOFEN
  13. TYLENOL [Concomitant]
     Active Substance: ACETAMINOPHEN

REACTIONS (1)
  - Cellulitis [Recovered/Resolved]
